FAERS Safety Report 4289397-3 (Version None)
Quarter: 2004Q1

REPORT INFORMATION
  Report Type: 
  Country: None (occurrence: None)
  Receive Date: 20040206
  Receipt Date: 20040126
  Transmission Date: 20041129
  Serious: Yes (Hospitalization, Other)
  Sender: FDA-Public Use
  Company Number: HQWYE576427JAN04

PATIENT
  Age: 23 Year
  Sex: Male
  Weight: 58.11 kg

DRUGS (3)
  1. INDERAL [Suspect]
     Indication: SCHIZOPHRENIA, PARANOID TYPE
     Dosage: 10 MG 2 X PER 1 DAY
  2. CLOZAPINE [Suspect]
     Indication: SCHIZOPHRENIA, PARANOID TYPE
     Dosage: 450 MG 1 X PER 1 DAY, ORAL
     Route: 048
     Dates: start: 20021001
  3. DEPAKOTE [Suspect]
     Dosage: ^ER 750 MG HS^

REACTIONS (2)
  - PSYCHOTIC DISORDER [None]
  - TREATMENT NONCOMPLIANCE [None]
